FAERS Safety Report 15262214 (Version 1)
Quarter: 2018Q3

REPORT INFORMATION
  Report Type: Spontaneous
  Country: US (occurrence: US)
  Receive Date: 20180720
  Receipt Date: 20180720
  Transmission Date: 20181010
  Serious: Yes (Hospitalization)
  Sender: FDA-Public Use
  Company Number: None

PATIENT
  Age: 32 Year
  Sex: Male
  Weight: 74.4 kg

DRUGS (4)
  1. BIKTARVY [Suspect]
     Active Substance: BICTEGRAVIR SODIUM\EMTRICITABINE\TENOFOVIR ALAFENAMIDE FUMARATE
     Indication: HIV INFECTION
     Route: 048
     Dates: start: 20180626, end: 20180705
  2. GLECAPREVIR?PIBRENTASVIR 100?40 [Concomitant]
  3. DOCUSATE 100 MG [Concomitant]
  4. ONDANSETRON 4 MG [Concomitant]
     Active Substance: ONDANSETRON

REACTIONS (7)
  - International normalised ratio increased [None]
  - Hepatitis acute [None]
  - Abdominal pain [None]
  - Coagulopathy [None]
  - Nausea [None]
  - Liver injury [None]
  - Vomiting [None]

NARRATIVE: CASE EVENT DATE: 20180706
